FAERS Safety Report 10991775 (Version 1)
Quarter: 2015Q2

REPORT INFORMATION
  Report Type: Spontaneous
  Country: US (occurrence: US)
  Receive Date: 20150406
  Receipt Date: 20150406
  Transmission Date: 20150821
  Serious: Yes (Hospitalization, Other)
  Sender: FDA-Public Use
  Company Number: US-ALEXION PHARMACEUTICALS INC-A201501095

PATIENT

DRUGS (4)
  1. SOLIRIS [Suspect]
     Active Substance: ECULIZUMAB
     Indication: ESCHERICHIA TEST POSITIVE
     Dosage: 900 MG, UNK
     Route: 042
  2. CIPROFLOXACIN. [Concomitant]
     Active Substance: CIPROFLOXACIN
     Indication: PRODUCT USED FOR UNKNOWN INDICATION
     Dosage: UNK
     Route: 065
  3. SOLIRIS [Suspect]
     Active Substance: ECULIZUMAB
     Indication: HAEMOLYTIC URAEMIC SYNDROME
     Dosage: 1200 MG, QW
     Route: 042
  4. SOLIRIS [Suspect]
     Active Substance: ECULIZUMAB
     Indication: OFF LABEL USE

REACTIONS (4)
  - Headache [Unknown]
  - Unevaluable event [Unknown]
  - Product use issue [Unknown]
  - Anuria [Unknown]
